FAERS Safety Report 26177879 (Version 1)
Quarter: 2025Q4

REPORT INFORMATION
  Report Type: Spontaneous
  Country: AU (occurrence: AU)
  Receive Date: 20251219
  Receipt Date: 20251219
  Transmission Date: 20260118
  Serious: Yes (Other)
  Sender: STRIDES
  Company Number: AU-STRIDES ARCOLAB LIMITED-2023SP010313

PATIENT
  Age: 4 Decade
  Sex: Female

DRUGS (8)
  1. MINOCYCLINE [Suspect]
     Active Substance: MINOCYCLINE HYDROCHLORIDE
     Indication: Morbihan disease
     Dosage: 100 MILLIGRAM, TWICE DAILY
     Route: 048
  2. PREDNISOLONE [Suspect]
     Active Substance: PREDNISOLONE
     Indication: Morbihan disease
     Dosage: 15 MG
     Route: 048
  3. ERYTHROMYCIN [Suspect]
     Active Substance: ERYTHROMYCIN
     Indication: Morbihan disease
     Dosage: 250 MILLIGRAM, TWICE DAILY
     Route: 048
  4. BRIMONIDINE [Suspect]
     Active Substance: BRIMONIDINE TARTRATE
     Indication: Morbihan disease
     Dosage: UNK
     Route: 061
  5. AZELAIC ACID [Suspect]
     Active Substance: AZELAIC ACID
     Indication: Morbihan disease
     Dosage: UNK
     Route: 061
  6. ISOTRETINOIN [Suspect]
     Active Substance: ISOTRETINOIN
     Indication: Morbihan disease
     Dosage: 20 MILLIGRAM, QD
     Route: 048
  7. ISOTRETINOIN [Suspect]
     Active Substance: ISOTRETINOIN
     Dosage: 40 MILLIGRAM, QD
     Route: 048
  8. ISOTRETINOIN [Suspect]
     Active Substance: ISOTRETINOIN
     Dosage: 60 MILLIGRAM, QD
     Route: 048

REACTIONS (3)
  - Disease progression [Recovering/Resolving]
  - Drug ineffective [Unknown]
  - Off label use [Unknown]
